FAERS Safety Report 22175309 (Version 1)
Quarter: 2023Q2

REPORT INFORMATION
  Report Type: Spontaneous
  Country: US (occurrence: US)
  Receive Date: 20230405
  Receipt Date: 20230405
  Transmission Date: 20230722
  Serious: Yes (Death)
  Sender: FDA-Public Use
  Company Number: US-CTI BIOPHARMA-2023US03492

PATIENT

DRUGS (12)
  1. VONJO [Suspect]
     Active Substance: PACRITINIB
     Indication: Myeloproliferative neoplasm
     Dosage: 200 MG, BID
     Route: 048
     Dates: start: 20230309
  2. VITAMIN B12 [Concomitant]
     Active Substance: CYANOCOBALAMIN
  3. PRAVASTATIN SODIUM [Concomitant]
     Active Substance: PRAVASTATIN SODIUM
  4. MAGNESIUM OXIDE [Concomitant]
     Active Substance: MAGNESIUM OXIDE
     Dosage: UNK MG
  5. GLIPIZIDE [Concomitant]
     Active Substance: GLIPIZIDE
     Dosage: UNK MG
  6. DICYCLOMINE HYDROCHLORIDE [Concomitant]
     Active Substance: DICYCLOMINE HYDROCHLORIDE
     Dosage: UNK MG
  7. ACETAMINOPHEN [Concomitant]
     Active Substance: ACETAMINOPHEN
     Dosage: UNK MG
  8. BENZONATATE [Concomitant]
     Active Substance: BENZONATATE
  9. ALLOPURINOL [Concomitant]
     Active Substance: ALLOPURINOL
  10. ENTRESTO [Concomitant]
     Active Substance: SACUBITRIL\VALSARTAN
  11. FLUTICASONE [Concomitant]
     Active Substance: FLUTICASONE
  12. FEXOFENADINE [Concomitant]
     Active Substance: FEXOFENADINE HYDROCHLORIDE

REACTIONS (1)
  - Death [Fatal]

NARRATIVE: CASE EVENT DATE: 20230323
